FAERS Safety Report 6018033-0 (Version None)
Quarter: 2008Q4

REPORT INFORMATION
  Report Type: 
  Country: None (occurrence: None)
  Receive Date: 20081223
  Receipt Date: 20081222
  Transmission Date: 20090506
  Serious: Yes (Other)
  Sender: FDA-Public Use
  Company Number: D0059964A

PATIENT
  Age: 45 Year
  Sex: Female

DRUGS (1)
  1. ELONTRIL [Suspect]
     Route: 048
     Dates: start: 20081220, end: 20081220

REACTIONS (4)
  - CONVULSION [None]
  - INTENTIONAL OVERDOSE [None]
  - SOPOR [None]
  - SUICIDE ATTEMPT [None]
